FAERS Safety Report 6054086-1 (Version None)
Quarter: 2009Q1

REPORT INFORMATION
  Report Type: 
  Country: None (occurrence: None)
  Receive Date: 20090127
  Receipt Date: 20090121
  Transmission Date: 20090719
  Serious: Yes (Other)
  Sender: FDA-Public Use
  Company Number: JP-ROCHE-591688

PATIENT
  Age: 13 Year
  Sex: Male

DRUGS (5)
  1. DENOSINE IV [Suspect]
     Indication: CYTOMEGALOVIRUS INFECTION
     Route: 041
     Dates: start: 20040116, end: 20040130
  2. DENOSINE IV [Suspect]
     Route: 041
     Dates: start: 20040202, end: 20040206
  3. DENOSINE IV [Suspect]
     Route: 041
     Dates: start: 20040209, end: 20040209
  4. EQUINE ANTITHYMOCYTE IMMUNOGLOBULIN [Concomitant]
     Route: 041
     Dates: start: 20031128, end: 20031202
  5. FLUDARABINE PHOSPHATE [Concomitant]
     Route: 041
     Dates: start: 20031123, end: 20031127

REACTIONS (2)
  - BONE MARROW FAILURE [None]
  - TRANSPLANT REJECTION [None]
